FAERS Safety Report 13177075 (Version 1)
Quarter: 2017Q1

REPORT INFORMATION
  Report Type: Report from Study
  Country: US (occurrence: US)
  Receive Date: 20170201
  Receipt Date: 20170201
  Transmission Date: 20170428
  Serious: No
  Sender: FDA-Public Use
  Company Number: US-EXELIXIS-CABO-16007026

PATIENT
  Age: 55 Year
  Sex: Male
  Weight: 126 kg

DRUGS (12)
  1. COMETRIQ [Suspect]
     Active Substance: CABOZANTINIB S-MALATE
     Dosage: 60 MG, QD
     Route: 048
     Dates: start: 20151103, end: 2016
  2. HYDROCODONE [Concomitant]
     Active Substance: HYDROCODONE
  3. COMETRIQ [Suspect]
     Active Substance: CABOZANTINIB S-MALATE
     Indication: RENAL CANCER
     Dosage: 60 MG, QD
     Route: 048
     Dates: start: 20141202, end: 20150708
  4. COMETRIQ [Suspect]
     Active Substance: CABOZANTINIB S-MALATE
     Dosage: 60 MG, QD
     Route: 048
     Dates: start: 2016
  5. GABAPENTIN. [Concomitant]
     Active Substance: GABAPENTIN
  6. BENICAR [Concomitant]
     Active Substance: OLMESARTAN MEDOXOMIL
  7. LEVOTHYROXINE. [Concomitant]
     Active Substance: LEVOTHYROXINE
  8. CALCIUM D [Concomitant]
     Active Substance: CALCIUM\VITAMIN D
  9. DELSYM [Concomitant]
     Active Substance: DEXTROMETHORPHAN
  10. AMLODIPINE [Concomitant]
     Active Substance: AMLODIPINE BESYLATE
  11. ZYRTEC [Concomitant]
     Active Substance: CETIRIZINE HYDROCHLORIDE
     Dosage: 60 MG, QD
     Route: 048
     Dates: start: 20151103
  12. ZYRTEC [Concomitant]
     Active Substance: CETIRIZINE HYDROCHLORIDE
     Dosage: 60 MG, QD
     Route: 048
     Dates: start: 20141202, end: 20150708

REACTIONS (4)
  - Blister [Unknown]
  - Temperature intolerance [Unknown]
  - Gingivitis [Unknown]
  - Off label use [Unknown]

NARRATIVE: CASE EVENT DATE: 201606
